FAERS Safety Report 15468566 (Version 1)
Quarter: 2018Q4

REPORT INFORMATION
  Report Type: Spontaneous
  Country: US (occurrence: US)
  Receive Date: 20181001
  Receipt Date: 20181001
  Transmission Date: 20190204
  Serious: No
  Sender: FDA-Public Use
  Company Number: None

PATIENT
  Age: 58 Year
  Sex: Female

DRUGS (1)
  1. MAVYRET [Suspect]
     Active Substance: GLECAPREVIR\PIBRENTASVIR
     Dates: start: 20180911

REACTIONS (4)
  - Arthralgia [None]
  - Neck pain [None]
  - Burning sensation [None]
  - Back pain [None]

NARRATIVE: CASE EVENT DATE: 20180911
